FAERS Safety Report 5621562-2 (Version None)
Quarter: 2008Q1

REPORT INFORMATION
  Report Type: 
  Country: None (occurrence: None)
  Receive Date: 20080211
  Receipt Date: 20080206
  Transmission Date: 20080703
  Serious: Yes (Other)
  Sender: FDA-Public Use
  Company Number: US-ASTRAZENECA-2008UW02515

PATIENT
  Age: 49 Year
  Sex: Female
  Weight: 90.7 kg

DRUGS (5)
  1. SYMBICORT [Suspect]
     Indication: ASTHMA
     Dosage: 160/4.5 UG, 2 PUFFS BID
     Route: 055
     Dates: start: 20080201
  2. ALBUTEROL [Concomitant]
  3. ALBUTEROL [Concomitant]
     Route: 055
  4. FLONASE [Concomitant]
  5. MUCINEX [Concomitant]

REACTIONS (3)
  - BRONCHIAL DISORDER [None]
  - CHOKING SENSATION [None]
  - SECRETION DISCHARGE [None]
